FAERS Safety Report 23664756 (Version 1)
Quarter: 2024Q1

REPORT INFORMATION
  Report Type: Spontaneous
  Country: US (occurrence: None)
  Receive Date: 20240322
  Receipt Date: 20240322
  Transmission Date: 20240409
  Serious: Yes (Other)
  Sender: FDA-Public Use
  Company Number: None

PATIENT
  Age: 52 Year
  Sex: Male
  Weight: 67.5 kg

DRUGS (4)
  1. ROSUVASTATIN CALCIUM [Suspect]
     Active Substance: ROSUVASTATIN CALCIUM
     Dates: start: 20240202, end: 20240223
  2. VITAMIN D [Concomitant]
     Active Substance: VITAMIN D NOS
  3. Fishoil [Concomitant]
  4. VITAMINS [Concomitant]
     Active Substance: VITAMINS

REACTIONS (9)
  - Abdominal distension [None]
  - Constipation [None]
  - Myalgia [None]
  - Musculoskeletal stiffness [None]
  - Peripheral swelling [None]
  - Peripheral swelling [None]
  - Peripheral swelling [None]
  - Musculoskeletal stiffness [None]
  - Joint stiffness [None]

NARRATIVE: CASE EVENT DATE: 20240223
